FAERS Safety Report 5063600-4 (Version None)
Quarter: 2006Q3

REPORT INFORMATION
  Report Type: 
  Country: None (occurrence: None)
  Receive Date: 20060703
  Receipt Date: 20051111
  Transmission Date: 20061208
  Serious: No
  Sender: FDA-Public Use
  Company Number: 2005S1011080

PATIENT
  Age: 54 Year
  Sex: Male

DRUGS (8)
  1. CLOZAPINE [Suspect]
     Dosage: 500 MG;HS;ORAL
     Route: 048
     Dates: start: 20020201
  2. SERTRALINE [Concomitant]
  3. HYDROCHLORIDE [Concomitant]
  4. AMLODIPINE BESYLATE [Concomitant]
  5. VALPROATE SODIUM [Concomitant]
  6. ATORVASTATIN CALCIUM [Concomitant]
  7. CLONAZEPAM [Concomitant]
  8. ATENOLOL [Concomitant]

REACTIONS (1)
  - GRANULOCYTOPENIA [None]
